FAERS Safety Report 15268383 (Version 1)
Quarter: 2018Q3

REPORT INFORMATION
  Report Type: Spontaneous
  Country: US (occurrence: US)
  Receive Date: 20180726
  Receipt Date: 20180726
  Transmission Date: 20181010
  Serious: Yes (Other)
  Sender: FDA-Public Use
  Company Number: None

PATIENT
  Sex: Female

DRUGS (10)
  1. CALCIUM, CENTRUM [Concomitant]
  2. MULTI?VITAMIN, NORVASC [Concomitant]
  3. PRILOSEC, SMZ?TMP [Concomitant]
  4. SYNTHROID, VITAMIN D [Concomitant]
  5. MYCOPHENOLATE [Suspect]
     Active Substance: MYCOPHENOLIC ACID
     Indication: RENAL TRANSPLANT
     Route: 048
     Dates: start: 20081001
  6. ASPIRIN LOW, BACTRIM [Concomitant]
  7. HUMALOG, HUMULIN [Concomitant]
  8. MAG OXIDE, METOPROL [Concomitant]
  9. TACROLIMUS. [Suspect]
     Active Substance: TACROLIMUS
     Indication: RENAL TRANSPLANT
     Route: 048
     Dates: start: 20081001
  10. AMLOD/VALSAR, ASPIRIN [Concomitant]

REACTIONS (1)
  - Neoplasm malignant [None]
